FAERS Safety Report 5335480-0 (Version None)
Quarter: 2007Q2

REPORT INFORMATION
  Report Type: 
  Country: None (occurrence: None)
  Receive Date: 20070521
  Receipt Date: 20070512
  Transmission Date: 20071010
  Serious: Yes (Other)
  Sender: FDA-Public Use
  Company Number: TAP2007Q00642

PATIENT
  Age: 70 Year
  Sex: Male

DRUGS (1)
  1. LUPRON DEPOT-4 [Suspect]
     Indication: PROSTATE CANCER
     Dosage: 30 MG, 1 IN 4 M, INTRAMUSCULAR
     Route: 030
     Dates: start: 20070301

REACTIONS (3)
  - DIPLOPIA [None]
  - IIIRD NERVE PARALYSIS [None]
  - OPHTHALMOPLEGIA [None]
